FAERS Safety Report 7595396-6 (Version None)
Quarter: 2011Q3

REPORT INFORMATION
  Report Type: 
  Country: None (occurrence: None)
  Receive Date: 20110707
  Receipt Date: 20110629
  Transmission Date: 20111222
  Serious: Yes (Hospitalization)
  Sender: FDA-Public Use
  Company Number: JP-MILLENNIUM PHARMACEUTICALS, INC.-2011-02539

PATIENT

DRUGS (1)
  1. VELCADE [Suspect]
     Indication: MULTIPLE MYELOMA
     Dosage: 1.8 MG, UNK
     Route: 042
     Dates: start: 20110414, end: 20110425

REACTIONS (4)
  - CHEST DISCOMFORT [None]
  - DIARRHOEA [None]
  - POLYARTERITIS NODOSA [None]
  - NEUROPATHY PERIPHERAL [None]
